FAERS Safety Report 9778260 (Version 1)
Quarter: 2013Q4

REPORT INFORMATION
  Report Type: Spontaneous
  Country: US (occurrence: None)
  Receive Date: 20131220
  Receipt Date: 20131220
  Transmission Date: 20140711
  Serious: Yes (Death)
  Sender: FDA-Public Use
  Company Number: None

PATIENT
  Age: 68 Year
  Sex: Male

DRUGS (1)
  1. ZYTIGA 250 MG JANSSEN BIOTECH [Suspect]
     Indication: PROSTATE CANCER
     Dosage: 4 TABLETS  DAILY  ORAL
     Route: 048
     Dates: start: 20121112, end: 20131205

REACTIONS (1)
  - Death [None]
